FAERS Safety Report 5145275-9 (Version None)
Quarter: 2006Q4

REPORT INFORMATION
  Report Type: 
  Country: None (occurrence: None)
  Receive Date: 20061107
  Receipt Date: 20060321
  Transmission Date: 20070319
  Serious: Yes (Hospitalization)
  Sender: FDA-Public Use
  Company Number: US-ELI_LILLY_AND_COMPANY-US200603006767

PATIENT
  Age: 69 Year
  Sex: Female

DRUGS (5)
  1. HUMALOG [Suspect]
     Dosage: UNK, UNKNOWN
  2. HUMULIN L [Suspect]
  3. HUMALOG MIX 75/25 [Suspect]
     Indication: DIABETES MELLITUS
     Dosage: 35 U, EACH EVENING
  4. HUMALOG MIX 75/25 [Suspect]
     Dosage: 60 U, EACH MORNING
     Dates: start: 20060201
  5. LANTUS [Concomitant]

REACTIONS (4)
  - BLOOD GLUCOSE INCREASED [None]
  - CATARACT [None]
  - CHOLECYSTECTOMY [None]
  - PHARMACEUTICAL PRODUCT COMPLAINT [None]
